FAERS Safety Report 20374254 (Version 1)
Quarter: 2022Q1

REPORT INFORMATION
  Report Type: Spontaneous
  Country: IT (occurrence: None)
  Receive Date: 20220125
  Receipt Date: 20220125
  Transmission Date: 20220423
  Serious: Yes (Hospitalization)
  Sender: FDA-Public Use
  Company Number: IT-ROCHE-3003893

PATIENT

DRUGS (1)
  1. OCRELIZUMAB [Suspect]
     Active Substance: OCRELIZUMAB
     Indication: Multiple sclerosis
     Route: 065

REACTIONS (9)
  - COVID-19 [Unknown]
  - Expanded disability status scale score increased [Unknown]
  - Infusion related reaction [Unknown]
  - Throat irritation [Unknown]
  - Oropharyngeal pain [Unknown]
  - Rash [Unknown]
  - Dyspnoea [Unknown]
  - Vaccination failure [Unknown]
  - Blood immunoglobulin G decreased [Unknown]
